FAERS Safety Report 6538480-8 (Version None)
Quarter: 2010Q1

REPORT INFORMATION
  Report Type: 
  Country: None (occurrence: None)
  Receive Date: 20100114
  Receipt Date: 20100112
  Transmission Date: 20100710
  Serious: Yes (Other)
  Sender: FDA-Public Use
  Company Number: US-GENENTECH-267685

PATIENT
  Age: 47 Year
  Sex: Male

DRUGS (1)
  1. LUCENTIS [Suspect]
     Indication: MACULAR OEDEMA
     Dosage: 0.3 MG, UNK
     Route: 031

REACTIONS (1)
  - RETINAL VASCULAR DISORDER [None]
